FAERS Safety Report 13506542 (Version 1)
Quarter: 2017Q2

REPORT INFORMATION
  Report Type: Spontaneous
  Country: US (occurrence: US)
  Receive Date: 20170502
  Receipt Date: 20170502
  Transmission Date: 20170830
  Serious: No
  Sender: FDA-Public Use
  Company Number: US-ROCHE-1365241

PATIENT
  Sex: Female
  Weight: 104.87 kg

DRUGS (3)
  1. NEULASTA [Concomitant]
     Active Substance: PEGFILGRASTIM
     Indication: BREAST CANCER
     Dosage: DAY 3 AFTER CHEMO
     Route: 058
     Dates: start: 20130910, end: 20140216
  2. FUSILEV [Concomitant]
     Active Substance: LEVOLEUCOVORIN CALCIUM
     Indication: BREAST CANCER
     Dosage: EVERY 14 DAYS
     Route: 042
     Dates: start: 20131008, end: 20140216
  3. AVASTIN [Suspect]
     Active Substance: BEVACIZUMAB
     Indication: BREAST CANCER
     Route: 042
     Dates: start: 20130226, end: 20140216

REACTIONS (1)
  - Malignant neoplasm progression [Unknown]
